FAERS Safety Report 21642050 (Version 2)
Quarter: 2022Q4

REPORT INFORMATION
  Report Type: Spontaneous
  Country: PT (occurrence: PT)
  Receive Date: 20221125
  Receipt Date: 20221202
  Transmission Date: 20230113
  Serious: Yes (Hospitalization)
  Sender: FDA-Public Use
  Company Number: PT-ASTELLAS-2022US038251

PATIENT
  Age: 18 Year
  Sex: Female

DRUGS (2)
  1. AMOXICILLIN\CLAVULANIC ACID [Suspect]
     Active Substance: AMOXICILLIN\CLAVULANIC ACID
     Indication: Tonsillitis bacterial
     Dosage: UNK
     Route: 065
  2. AMOXICILLIN\CLAVULANIC ACID [Suspect]
     Active Substance: AMOXICILLIN\CLAVULANIC ACID
     Indication: Epstein-Barr virus infection

REACTIONS (6)
  - Drug eruption [Unknown]
  - Pustule [Unknown]
  - Oral pustule [Unknown]
  - Rash [Unknown]
  - Rash pustular [Unknown]
  - Off label use [Recovered/Resolved]
